FAERS Safety Report 8084566-9 (Version None)
Quarter: 2012Q1

REPORT INFORMATION
  Report Type: 
  Country: None (occurrence: None)
  Receive Date: 20120128
  Receipt Date: 20110314
  Transmission Date: 20120608
  Serious: Yes (Other)
  Sender: FDA-Public Use
  Company Number: US-ABBOTT-11P-163-0712222-00

PATIENT
  Sex: Female
  Weight: 81.72 kg

DRUGS (11)
  1. CARVEDILOL [Concomitant]
     Indication: CARDIAC DISORDER
  2. LISINOPRIL [Concomitant]
     Indication: HYPERTENSION
  3. HUMIRA [Suspect]
     Indication: RHEUMATOID ARTHRITIS
     Dates: start: 20100901
  4. DIGOXIN [Concomitant]
     Indication: ARRHYTHMIA
  5. MULTAQ [Concomitant]
     Indication: CARDIAC DISORDER
  6. DIOVAN [Concomitant]
     Indication: HYPERTENSION
  7. BIOTIN [Concomitant]
     Indication: VITAMIN SUPPLEMENTATION
  8. LANSOPRAZOLE [Concomitant]
     Indication: GASTRIC DISORDER
  9. FOLIC ACID [Concomitant]
     Indication: PRODUCT USED FOR UNKNOWN INDICATION
  10. BUMETANIDE [Concomitant]
     Indication: CARDIAC DISORDER
  11. WARFARIN SODIUM [Concomitant]
     Indication: CARDIAC DISORDER

REACTIONS (2)
  - SKIN CANCER [None]
  - SKIN MASS [None]
